FAERS Safety Report 6566116-9 (Version None)
Quarter: 2010Q1

REPORT INFORMATION
  Report Type: 
  Country: None (occurrence: None)
  Receive Date: 20100202
  Receipt Date: 20100126
  Transmission Date: 20100710
  Serious: Yes (Hospitalization)
  Sender: FDA-Public Use
  Company Number: FR-KINGPHARMUSA00001-K201000100

PATIENT
  Age: 72 Year
  Sex: Male

DRUGS (4)
  1. ALTACE [Suspect]
     Indication: HYPERTENSION
     Dosage: 5 MG, BID
     Route: 048
     Dates: start: 20000101
  2. GLYCERYL TRINITRATE [Suspect]
     Indication: ACUTE MYOCARDIAL INFARCTION
     Dosage: .8 MG, PRN
     Route: 060
     Dates: start: 19980101
  3. ACETYLSALICYLIC ACID [Concomitant]
     Dosage: UNK
     Dates: start: 19980101
  4. SIMVASTATIN [Concomitant]
     Dosage: UNK
     Dates: start: 20000101

REACTIONS (3)
  - HYPOTENSION [None]
  - SCOTOMA [None]
  - SYNCOPE [None]
